FAERS Safety Report 23577418 (Version 1)
Quarter: 2024Q1

REPORT INFORMATION
  Report Type: Spontaneous
  Country: US (occurrence: US)
  Receive Date: 20240228
  Receipt Date: 20240228
  Transmission Date: 20240410
  Serious: No
  Sender: FDA-Public Use
  Company Number: US-BAUSCH-BL-2024-002945

PATIENT
  Age: 71 Year
  Sex: Male

DRUGS (2)
  1. ELIDEL [Suspect]
     Active Substance: PIMECROLIMUS
     Indication: Rash
     Route: 065
     Dates: start: 2017, end: 2022
  2. ELIDEL [Suspect]
     Active Substance: PIMECROLIMUS
     Indication: Product use in unapproved indication

REACTIONS (3)
  - Rash [Unknown]
  - Product availability issue [Unknown]
  - Product use in unapproved indication [Unknown]

NARRATIVE: CASE EVENT DATE: 20170101
